FAERS Safety Report 11988399 (Version 3)
Quarter: 2016Q1

REPORT INFORMATION
  Report Type: Spontaneous
  Country: AT (occurrence: AT)
  Receive Date: 20160202
  Receipt Date: 20160322
  Transmission Date: 20160526
  Serious: Yes (Hospitalization)
  Sender: FDA-Public Use
  Company Number: AT-ROCHE-1702278

PATIENT
  Age: 83 Year
  Sex: Female

DRUGS (2)
  1. CHLORAMBUCIL [Suspect]
     Active Substance: CHLORAMBUCIL
     Indication: LEUKAEMIA
     Dosage: DAY 1 AND 15 OF EACH CYCLE?6 CYCLES
     Route: 065
     Dates: start: 20150731, end: 20151222
  2. GAZYVARO [Suspect]
     Active Substance: OBINUTUZUMAB
     Indication: CHRONIC LYMPHOCYTIC LEUKAEMIA
     Dosage: DAY 1, 8, 15 EACH CYCLE. ?6 CYCLES
     Route: 065
     Dates: start: 20150731, end: 20151222

REACTIONS (1)
  - Progressive multifocal leukoencephalopathy [Unknown]

NARRATIVE: CASE EVENT DATE: 20160127
